FAERS Safety Report 7957649-9 (Version None)
Quarter: 2011Q4

REPORT INFORMATION
  Report Type: 
  Country: None (occurrence: None)
  Receive Date: 20111205
  Receipt Date: 20111123
  Transmission Date: 20120403
  Serious: Yes (Other)
  Sender: FDA-Public Use
  Company Number: PHEH2011US010147

PATIENT
  Sex: Female

DRUGS (12)
  1. VICODIN [Concomitant]
     Indication: PAIN
     Dosage: 5MG/500MG 1X6 HRS
  2. LOSARTAN POTASSIUM [Suspect]
     Dosage: UNK
  3. CARDIZEM CD [Concomitant]
     Dosage: UNK
  4. METFORMIN HCL [Concomitant]
     Dosage: UNK
  5. LYRICA [Concomitant]
     Dosage: UNK UKN, UNK
  6. ISO-BID [Concomitant]
     Dosage: UNK
  7. VITAMIN D [Concomitant]
     Dosage: 50,000 IU EVERY OTHER WEEK
  8. LIPITOR [Concomitant]
     Dosage: UNK
  9. DIOVAN [Suspect]
     Dosage: 1 DF, QD
  10. TRAMADOL HCL [Suspect]
     Indication: PAIN
     Dosage: 50 MG, 1 OR 2 X 6 HRS
  11. ASPIRIN [Concomitant]
     Dosage: UNK
  12. ZETIA [Concomitant]
     Dosage: UNK

REACTIONS (10)
  - OEDEMA PERIPHERAL [None]
  - DYSPNOEA [None]
  - FALL [None]
  - COUGH [None]
  - DIZZINESS [None]
  - CHEST DISCOMFORT [None]
  - BALANCE DISORDER [None]
  - FOOT FRACTURE [None]
  - PRURITUS GENERALISED [None]
  - GAIT DISTURBANCE [None]
